FAERS Safety Report 6264684-8 (Version None)
Quarter: 2009Q3

REPORT INFORMATION
  Report Type: 
  Country: None (occurrence: None)
  Receive Date: 20090710
  Receipt Date: 20090702
  Transmission Date: 20100115
  Serious: Yes (Other)
  Sender: FDA-Public Use
  Company Number: US-ELI_LILLY_AND_COMPANY-US200904000680

PATIENT
  Age: 41 Year
  Sex: Male

DRUGS (1)
  1. CIALIS [Suspect]
     Indication: ERECTILE DYSFUNCTION
     Dosage: 10 MG, DAILY (1/D)
     Route: 065

REACTIONS (3)
  - MEDICATION ERROR [None]
  - PENILE OEDEMA [None]
  - PENILE VASCULAR DISORDER [None]
